FAERS Safety Report 5858360-0 (Version None)
Quarter: 2008Q3

REPORT INFORMATION
  Report Type: 
  Country: None (occurrence: None)
  Receive Date: 20080818
  Receipt Date: 20080618
  Transmission Date: 20090109
  Serious: No
  Sender: FDA-Public Use
  Company Number: TPA2008A00926

PATIENT
  Age: 7 Decade
  Sex: Female

DRUGS (2)
  1. ROZEREM [Suspect]
     Indication: INITIAL INSOMNIA
     Dosage: 16 MG, HS, PER ORAL
     Route: 048
  2. TEMAZEPAM [Concomitant]

REACTIONS (2)
  - DEPRESSION [None]
  - OVERDOSE [None]
